FAERS Safety Report 4480567-8 (Version None)
Quarter: 2004Q4

REPORT INFORMATION
  Report Type: 
  Country: None (occurrence: None)
  Receive Date: 20041019
  Receipt Date: 20040713
  Transmission Date: 20050328
  Serious: Yes (Life-Threatening, Hospitalization, Other)
  Sender: FDA-Public Use
  Company Number: 2004S1003109

PATIENT
  Age: 74 Year
  Sex: Male

DRUGS (2)
  1. APO-GO            (APOMORPHINE HCL ) [Suspect]
     Indication: PARKINSON'S DISEASE
     Dosage: 7 MG/HR, SUBCUTANEOUS
     Route: 058
     Dates: start: 20021201
  2. LEVODOPA/BENSERAZIDE [Concomitant]

REACTIONS (1)
  - CARCINOMA [None]
